FAERS Safety Report 12903180 (Version 1)
Quarter: 2016Q4

REPORT INFORMATION
  Report Type: Spontaneous
  Country: FR (occurrence: FR)
  Receive Date: 20161102
  Receipt Date: 20161102
  Transmission Date: 20170207
  Serious: Yes (Hospitalization)
  Sender: FDA-Public Use
  Company Number: FR-PFIZER INC-2016503177

PATIENT
  Age: 77 Year
  Sex: Male

DRUGS (7)
  1. EUPANTOL [Suspect]
     Active Substance: PANTOPRAZOLE SODIUM
     Indication: HIATUS HERNIA
     Dosage: 20 MG, QD
     Route: 048
     Dates: end: 20161004
  2. GLIVEC [Suspect]
     Active Substance: IMATINIB MESYLATE
     Indication: CHRONIC MYELOID LEUKAEMIA
     Dosage: 200 MG, QD
     Route: 048
     Dates: start: 2010, end: 20161004
  3. HYTACAND [Suspect]
     Active Substance: CANDESARTAN CILEXETIL\HYDROCHLOROTHIAZIDE
     Indication: HYPERTENSION
     Dosage: 8 MG/12.5 MG, QD
     Route: 048
     Dates: end: 20161004
  4. FLECAINE [Suspect]
     Active Substance: FLECAINIDE
     Indication: ARRHYTHMIA SUPRAVENTRICULAR
     Dosage: 100 MG, QD
     Route: 048
     Dates: end: 20161004
  5. LERCAN [Concomitant]
     Active Substance: LERCANIDIPINE
     Indication: HYPERTENSION
     Dosage: 20 MG, QD
     Route: 048
  6. ALLOPURINOL. [Suspect]
     Active Substance: ALLOPURINOL
     Indication: GOUT
     Dosage: 300 MG, QD
     Route: 048
     Dates: end: 20161004
  7. TANGANIL [Concomitant]
     Active Substance: ACETYLLEUCINE
     Dosage: 20 MG, QD
     Route: 048
     Dates: end: 20161004

REACTIONS (4)
  - Dizziness [Recovering/Resolving]
  - Syncope [Recovered/Resolved]
  - Oedema [Recovering/Resolving]
  - Vena cava thrombosis [Recovering/Resolving]

NARRATIVE: CASE EVENT DATE: 20161003
